FAERS Safety Report 18690862 (Version 1)
Quarter: 2021Q1

REPORT INFORMATION
  Report Type: Report from Study
  Country: FR (occurrence: FR)
  Receive Date: 20210101
  Receipt Date: 20210101
  Transmission Date: 20210419
  Serious: Yes (Hospitalization)
  Sender: FDA-Public Use
  Company Number: FR-TAKEDA-FR201945871

PATIENT

DRUGS (40)
  1. TEDUGLUTIDE [Suspect]
     Active Substance: TEDUGLUTIDE
     Dosage: 2.8 MILLIGRAM (0.05 MG/KG, 7 TED DOSES PER WEEK)
     Route: 058
     Dates: start: 20160825, end: 20160908
  2. TEDUGLUTIDE [Suspect]
     Active Substance: TEDUGLUTIDE
     Dosage: 2.8 MILLIGRAM (0.05 MG/KG, 7 TED DOSES PER WEEK)
     Route: 058
     Dates: start: 20170214, end: 20170220
  3. TEDUGLUTIDE [Suspect]
     Active Substance: TEDUGLUTIDE
     Dosage: 2.8 MILLIGRAM (0.05 MG/KG, 7 TED DOSES PER WEEK)
     Route: 058
     Dates: start: 20170412, end: 20181129
  4. TEDUGLUTIDE [Suspect]
     Active Substance: TEDUGLUTIDE
     Indication: SHORT-BOWEL SYNDROME
     Dosage: 3.0 MILLIGRAM (0.05 MG/KG, 7 TED DOSES PER WEEK)
     Route: 058
     Dates: start: 20160404, end: 20160824
  5. TEDUGLUTIDE [Suspect]
     Active Substance: TEDUGLUTIDE
     Dosage: 2.8 MILLIGRAM (0.05 MG/KG, 7 TED DOSES PER WEEK)
     Route: 058
     Dates: start: 20160915, end: 20161107
  6. TEDUGLUTIDE [Suspect]
     Active Substance: TEDUGLUTIDE
     Dosage: 2.6 MILLIGRAM (0.05 MG/KG, 7 TED DOSES PER WEEK)
     Route: 058
     Dates: start: 20161108, end: 20161206
  7. TEDUGLUTIDE [Suspect]
     Active Substance: TEDUGLUTIDE
     Dosage: 2.8 MILLIGRAM (0.05 MG/KG, 7 TED DOSES PER WEEK)
     Route: 058
     Dates: start: 20170214, end: 20170220
  8. TEDUGLUTIDE [Suspect]
     Active Substance: TEDUGLUTIDE
     Dosage: 2.6 MILLIGRAM (0.05 MG/KG, 7 TED DOSES PER WEEK)
     Route: 058
     Dates: start: 20170303, end: 20170411
  9. TEDUGLUTIDE [Suspect]
     Active Substance: TEDUGLUTIDE
     Dosage: 2.6 MILLIGRAM (0.05 MG/KG, 7 TED DOSES PER WEEK)
     Route: 058
     Dates: start: 20170303, end: 20170411
  10. TEDUGLUTIDE [Suspect]
     Active Substance: TEDUGLUTIDE
     Dosage: 2.6 MILLIGRAM (0.05 MG/KG, 7 TED DOSES PER WEEK)
     Route: 058
     Dates: start: 20170303, end: 20170411
  11. TEDUGLUTIDE [Suspect]
     Active Substance: TEDUGLUTIDE
     Indication: SHORT-BOWEL SYNDROME
     Dosage: 3.0 MILLIGRAM (0.05 MG/KG, 7 TED DOSES PER WEEK)
     Route: 058
     Dates: start: 20160404, end: 20160824
  12. TEDUGLUTIDE [Suspect]
     Active Substance: TEDUGLUTIDE
     Dosage: 2.6 MILLIGRAM (0.05 MG/KG, 7 TED DOSES PER WEEK)
     Route: 058
     Dates: start: 20160909, end: 20160914
  13. TEDUGLUTIDE [Suspect]
     Active Substance: TEDUGLUTIDE
     Dosage: 2.8 MILLIGRAM (0.05 MG/KG, 7 TED DOSES PER WEEK)
     Route: 058
     Dates: start: 20160915, end: 20161107
  14. TEDUGLUTIDE [Suspect]
     Active Substance: TEDUGLUTIDE
     Dosage: 2.8 MILLIGRAM (0.05 MG/KG, 7 TED DOSES PER WEEK)
     Route: 058
     Dates: start: 20170214, end: 20170220
  15. TEDUGLUTIDE [Suspect]
     Active Substance: TEDUGLUTIDE
     Dosage: 2.8 MILLIGRAM (0.05 MG/KG, 7 TED DOSES PER WEEK)
     Route: 058
     Dates: start: 20170214, end: 20170220
  16. TEDUGLUTIDE [Suspect]
     Active Substance: TEDUGLUTIDE
     Dosage: 2.8 MILLIGRAM (0.05 MG/KG, 7 TED DOSES PER WEEK)
     Route: 058
     Dates: start: 20170412, end: 20181129
  17. TEDUGLUTIDE [Suspect]
     Active Substance: TEDUGLUTIDE
     Dosage: 2.4 MILLIGRAM (0.05 MG/KG, 7 TED DOSES PER WEEK)
     Route: 058
     Dates: start: 20181130
  18. TEDUGLUTIDE [Suspect]
     Active Substance: TEDUGLUTIDE
     Indication: SHORT-BOWEL SYNDROME
     Dosage: 3.0 MILLIGRAM (0.05 MG/KG, 7 TED DOSES PER WEEK)
     Route: 058
     Dates: start: 20160404, end: 20160824
  19. TEDUGLUTIDE [Suspect]
     Active Substance: TEDUGLUTIDE
     Dosage: 2.6 MILLIGRAM (0.05 MG/KG, 7 TED DOSES PER WEEK)
     Route: 058
     Dates: start: 20160909, end: 20160914
  20. TEDUGLUTIDE [Suspect]
     Active Substance: TEDUGLUTIDE
     Dosage: 2.6 MILLIGRAM (0.05 MG/KG, 7 TED DOSES PER WEEK)
     Route: 058
     Dates: start: 20161108, end: 20161206
  21. TEDUGLUTIDE [Suspect]
     Active Substance: TEDUGLUTIDE
     Dosage: 2.8 MILLIGRAM (0.05 MG/KG, 7 TED DOSES PER WEEK)
     Route: 058
     Dates: start: 20170412, end: 20181129
  22. TEDUGLUTIDE [Suspect]
     Active Substance: TEDUGLUTIDE
     Dosage: 2.4 MILLIGRAM (0.05 MG/KG, 7 TED DOSES PER WEEK)
     Route: 058
     Dates: start: 20181130
  23. CALCIUM CARBONATE. [Concomitant]
     Active Substance: CALCIUM CARBONATE
     Indication: SHORT-BOWEL SYNDROME
  24. TEDUGLUTIDE [Suspect]
     Active Substance: TEDUGLUTIDE
     Indication: SHORT-BOWEL SYNDROME
     Dosage: 3.0 MILLIGRAM (0.05 MG/KG, 7 TED DOSES PER WEEK)
     Route: 058
     Dates: start: 20160404, end: 20160824
  25. TEDUGLUTIDE [Suspect]
     Active Substance: TEDUGLUTIDE
     Dosage: 2.8 MILLIGRAM (0.05 MG/KG, 7 TED DOSES PER WEEK)
     Route: 058
     Dates: start: 20160825, end: 20160908
  26. TEDUGLUTIDE [Suspect]
     Active Substance: TEDUGLUTIDE
     Dosage: 2.8 MILLIGRAM (0.05 MG/KG, 7 TED DOSES PER WEEK)
     Route: 058
     Dates: start: 20160825, end: 20160908
  27. TEDUGLUTIDE [Suspect]
     Active Substance: TEDUGLUTIDE
     Dosage: 2.6 MILLIGRAM (0.05 MG/KG, 7 TED DOSES PER WEEK)
     Route: 058
     Dates: start: 20160909, end: 20160914
  28. TEDUGLUTIDE [Suspect]
     Active Substance: TEDUGLUTIDE
     Dosage: 2.6 MILLIGRAM (0.05 MG/KG, 7 TED DOSES PER WEEK)
     Route: 058
     Dates: start: 20160909, end: 20160914
  29. TEDUGLUTIDE [Suspect]
     Active Substance: TEDUGLUTIDE
     Dosage: 2.6 MILLIGRAM (0.05 MG/KG, 7 TED DOSES PER WEEK)
     Route: 058
     Dates: start: 20161108, end: 20161206
  30. TEDUGLUTIDE [Suspect]
     Active Substance: TEDUGLUTIDE
     Dosage: 2.6 MILLIGRAM (0.05 MG/KG, 7 TED DOSES PER WEEK)
     Route: 058
     Dates: start: 20170303, end: 20170411
  31. COLECALCIFEROL [Concomitant]
     Active Substance: CHOLECALCIFEROL
     Indication: SHORT-BOWEL SYNDROME
  32. TEDUGLUTIDE [Suspect]
     Active Substance: TEDUGLUTIDE
     Dosage: 2.8 MILLIGRAM (0.05 MG/KG, 7 TED DOSES PER WEEK)
     Route: 058
     Dates: start: 20160915, end: 20161107
  33. TEDUGLUTIDE [Suspect]
     Active Substance: TEDUGLUTIDE
     Dosage: 2.8 MILLIGRAM (0.05 MG/KG, 7 TED DOSES PER WEEK)
     Route: 058
     Dates: start: 20160915, end: 20161107
  34. TEDUGLUTIDE [Suspect]
     Active Substance: TEDUGLUTIDE
     Dosage: 2.6 MILLIGRAM (0.05 MG/KG, 7 TED DOSES PER WEEK)
     Route: 058
     Dates: start: 20161108, end: 20161206
  35. MAGNESIUM SULFATE. [Concomitant]
     Active Substance: MAGNESIUM SULFATE
     Indication: SHORT-BOWEL SYNDROME
  36. TEDUGLUTIDE [Suspect]
     Active Substance: TEDUGLUTIDE
     Dosage: 2.8 MILLIGRAM (0.05 MG/KG, 7 TED DOSES PER WEEK)
     Route: 058
     Dates: start: 20160825, end: 20160908
  37. TEDUGLUTIDE [Suspect]
     Active Substance: TEDUGLUTIDE
     Dosage: 2.8 MILLIGRAM (0.05 MG/KG, 7 TED DOSES PER WEEK)
     Route: 058
     Dates: start: 20170412, end: 20181129
  38. TEDUGLUTIDE [Suspect]
     Active Substance: TEDUGLUTIDE
     Dosage: 2.4 MILLIGRAM (0.05 MG/KG, 7 TED DOSES PER WEEK)
     Route: 058
     Dates: start: 20181130
  39. TEDUGLUTIDE [Suspect]
     Active Substance: TEDUGLUTIDE
     Dosage: 2.4 MILLIGRAM (0.05 MG/KG, 7 TED DOSES PER WEEK)
     Route: 058
     Dates: start: 20181130
  40. WARFARINE [Concomitant]
     Active Substance: WARFARIN
     Indication: THROMBOSIS PROPHYLAXIS

REACTIONS (3)
  - Peripheral ischaemia [Recovered/Resolved]
  - Vascular device infection [Recovered/Resolved]
  - Intermittent claudication [Not Recovered/Not Resolved]

NARRATIVE: CASE EVENT DATE: 20190905
